FAERS Safety Report 8225140-0 (Version None)
Quarter: 2012Q1

REPORT INFORMATION
  Report Type: 
  Country: None (occurrence: None)
  Receive Date: 20120319
  Receipt Date: 20120308
  Transmission Date: 20120608
  Serious: No
  Sender: FDA-Public Use
  Company Number: 12/03/08AH

PATIENT
  Sex: Male
  Weight: 9.5255 kg

DRUGS (1)
  1. CEDAX [Suspect]
     Indication: OTITIS MEDIA
     Dosage: ORAL 1 TBL (2.5 ML) /DAY
     Route: 048
     Dates: start: 20120201, end: 20120210

REACTIONS (1)
  - IDIOPATHIC THROMBOCYTOPENIC PURPURA [None]
